FAERS Safety Report 4846613-4 (Version None)
Quarter: 2005Q4

REPORT INFORMATION
  Report Type: 
  Country: None (occurrence: None)
  Receive Date: 20051202
  Receipt Date: 20051122
  Transmission Date: 20060501
  Serious: Yes (Hospitalization)
  Sender: FDA-Public Use
  Company Number: SP-2005-002366

PATIENT
  Age: 65 Year
  Sex: Female
  Weight: 60 kg

DRUGS (3)
  1. OLMETEC [Suspect]
     Indication: HYPERTENSION
     Dosage: 20 MG QD PO
     Route: 048
     Dates: start: 20050401, end: 20050501
  2. OLMETEC [Suspect]
     Indication: HYPERTENSION
     Dosage: 10 MG QD PO
     Route: 048
     Dates: start: 20050501, end: 20050701
  3. LOZOL [Concomitant]

REACTIONS (9)
  - ANOREXIA [None]
  - ASTHENIA [None]
  - CARDIOLIPIN ANTIBODY POSITIVE [None]
  - CHEILITIS [None]
  - DIARRHOEA [None]
  - DYSPHAGIA [None]
  - HAEMOLYTIC ANAEMIA [None]
  - TOXIC SKIN ERUPTION [None]
  - VITAMIN B12 INCREASED [None]
